FAERS Safety Report 14277684 (Version 4)
Quarter: 2018Q1

REPORT INFORMATION
  Report Type: Spontaneous
  Country: US (occurrence: US)
  Receive Date: 20171212
  Receipt Date: 20180126
  Transmission Date: 20180508
  Serious: Yes (Hospitalization)
  Sender: FDA-Public Use
  Company Number: US-VERTEX PHARMACEUTICALS-2017-006872

PATIENT
  Age: 5 Year
  Sex: Female

DRUGS (9)
  1. KALYDECO [Suspect]
     Active Substance: IVACAFTOR
     Dosage: 50 MG, BID
     Route: 048
     Dates: start: 20161017, end: 201705
  2. VITAMIN D3 [Concomitant]
     Active Substance: CHOLECALCIFEROL
  3. ZENPEP [Concomitant]
     Active Substance: PANCRELIPASE AMYLASE\PANCRELIPASE LIPASE\PANCRELIPASE PROTEASE
  4. AQUADEKS                           /07679501/ [Concomitant]
     Active Substance: MINERALS\VITAMINS
  5. SODIUM CHLORIDE. [Concomitant]
     Active Substance: SODIUM CHLORIDE
  6. KALYDECO [Suspect]
     Active Substance: IVACAFTOR
     Indication: CYSTIC FIBROSIS
     Dosage: 75 MG, QD
     Route: 048
     Dates: start: 20150512
  7. PREVACID [Concomitant]
     Active Substance: LANSOPRAZOLE
  8. VENTOLIN HFA [Concomitant]
     Active Substance: ALBUTEROL SULFATE
  9. KALYDECO [Suspect]
     Active Substance: IVACAFTOR
     Dosage: 1 PACKET (75 MG), BID
     Route: 048
     Dates: start: 20170518

REACTIONS (2)
  - Infective pulmonary exacerbation of cystic fibrosis [Recovered/Resolved]
  - Distal intestinal obstruction syndrome [Recovered/Resolved]

NARRATIVE: CASE EVENT DATE: 20171201
